FAERS Safety Report 5058280-8 (Version None)
Quarter: 2006Q2

REPORT INFORMATION
  Report Type: 
  Country: None (occurrence: None)
  Receive Date: 20060627
  Receipt Date: 20051128
  Transmission Date: 20061013
  Serious: Yes (Death)
  Sender: FDA-Public Use
  Company Number: 426317

PATIENT
  Age: 38 Year
  Sex: Female

DRUGS (7)
  1. XELODA [Suspect]
     Indication: BREAST CANCER
     Dosage: 1000 MG 2 PER DAY ORAL
     Route: 048
     Dates: start: 20051006
  2. AVASTIN [Concomitant]
  3. TAXOTERE [Concomitant]
  4. ZOMETA [Concomitant]
  5. ARANESP [Concomitant]
  6. ALOXI [Concomitant]
  7. DECADRON [Concomitant]

REACTIONS (1)
  - DISEASE PROGRESSION [None]
